FAERS Safety Report 13449990 (Version 1)
Quarter: 2017Q2

REPORT INFORMATION
  Report Type: Spontaneous
  Country: US (occurrence: US)
  Receive Date: 20170417
  Receipt Date: 20170417
  Transmission Date: 20170830
  Serious: No
  Sender: FDA-Public Use
  Company Number: US-BION-20160445

PATIENT
  Age: 74 Year
  Sex: Female
  Weight: 79.38 kg

DRUGS (3)
  1. UNSPECIFIED BLOOD PRESSURE MEDICATION [Concomitant]
     Active Substance: UNSPECIFIED INGREDIENT
  2. ALEVE [Suspect]
     Active Substance: NAPROXEN SODIUM
     Indication: ARTHRITIS
     Dosage: 1 DF AS NEEDED
     Route: 048
  3. UNSPECIFIED LOWEST DOSE OF THYROID MEDICATION [Concomitant]

REACTIONS (4)
  - Product physical issue [Unknown]
  - Malaise [Recovering/Resolving]
  - Head discomfort [Recovering/Resolving]
  - Poor quality drug administered [Unknown]

NARRATIVE: CASE EVENT DATE: 20160818
